FAERS Safety Report 6798216-2 (Version None)
Quarter: 2010Q2

REPORT INFORMATION
  Report Type: 
  Country: None (occurrence: None)
  Receive Date: 20100622
  Receipt Date: 20100608
  Transmission Date: 20101027
  Serious: Yes (Hospitalization)
  Sender: FDA-Public Use
  Company Number: 2010SP001679

PATIENT
  Age: 16 Year
  Sex: Female

DRUGS (10)
  1. XOPENEX [Suspect]
     Indication: RESPIRATORY TRACT INFECTION
     Dosage: INHALATION
     Route: 055
  2. IPRATROPIUM [Concomitant]
  3. BROMIDE [Concomitant]
  4. PULMOZYME [Concomitant]
  5. FLUTICASONE [Concomitant]
  6. PROPIONATE [Concomitant]
  7. NAFCILLIN [Concomitant]
  8. MINOCYCLINE [Concomitant]
  9. MICAFUNGIN [Concomitant]
  10. CEFAZOLIN [Concomitant]

REACTIONS (8)
  - BRONCHIECTASIS [None]
  - CANDIDIASIS [None]
  - CYSTIC FIBROSIS LUNG [None]
  - FUNGAL INFECTION [None]
  - LYMPHADENOPATHY [None]
  - SPUTUM DISCOLOURED [None]
  - STAPHYLOCOCCAL INFECTION [None]
  - STENOTROPHOMONAS INFECTION [None]
